FAERS Safety Report 5860576-4 (Version None)
Quarter: 2008Q3

REPORT INFORMATION
  Report Type: 
  Country: None (occurrence: None)
  Receive Date: 20080827
  Receipt Date: 20070917
  Transmission Date: 20090109
  Serious: No
  Sender: FDA-Public Use
  Company Number: US-ABBOTT-07P-163-0417311-00

PATIENT
  Sex: Male
  Weight: 92 kg

DRUGS (4)
  1. COATED PDS [Suspect]
     Indication: BLOOD CHOLESTEROL
     Route: 048
     Dates: start: 20030101, end: 20070831
  2. COATED PDS [Suspect]
     Route: 048
     Dates: start: 20070831
  3. MORNIFLUMATE [Concomitant]
     Indication: BLADDER DISORDER
     Route: 048
  4. NARINE [Concomitant]
     Indication: DRUG USE FOR UNKNOWN INDICATION
     Route: 048

REACTIONS (3)
  - EAR DISCOMFORT [None]
  - NAUSEA [None]
  - PARAESTHESIA [None]
